FAERS Safety Report 5163676-X (Version None)
Quarter: 2006Q4

REPORT INFORMATION
  Report Type: 
  Country: None (occurrence: None)
  Receive Date: 20061204
  Receipt Date: 20061129
  Transmission Date: 20070319
  Serious: Yes (Life-Threatening, Other)
  Sender: FDA-Public Use
  Company Number: US-GLAXOSMITHKLINE-A0629791A

PATIENT
  Age: 68 Year
  Sex: Male
  Weight: 97.3 kg

DRUGS (15)
  1. ROSIGLITAZONE [Suspect]
     Dosage: 8MG PER DAY
     Route: 048
     Dates: start: 20001101
  2. METFORMIN [Suspect]
     Dosage: 2000MG PER DAY
     Dates: start: 19980401
  3. PRAMLINTIDE [Suspect]
     Dosage: 240MCG PER DAY
     Dates: start: 20060601
  4. NOVOLOG [Suspect]
     Dosage: 70UNIT PER DAY
     Dates: start: 20021101
  5. GLARGINE [Suspect]
     Dosage: 100UNIT PER DAY
  6. GLIMEPIRIDE [Suspect]
     Dosage: 8MG PER DAY
     Dates: start: 20020401
  7. TERAZOSIN HCL [Concomitant]
  8. OXYBUTYNIN [Concomitant]
  9. RANITIDINE [Concomitant]
  10. EZETIMIBE [Concomitant]
  11. QUININE SULFATE [Concomitant]
  12. LOSARTAN POSTASSIUM [Concomitant]
  13. HYDROCHLOROTHIAZIDE [Concomitant]
  14. ASPIRIN [Concomitant]
  15. NIASPAN [Concomitant]

REACTIONS (3)
  - HYPOGLYCAEMIA [None]
  - LOSS OF CONSCIOUSNESS [None]
  - OVERDOSE [None]
